FAERS Safety Report 9343082 (Version 1)
Quarter: 2013Q2

REPORT INFORMATION
  Report Type: Spontaneous
  Country: DE (occurrence: DE)
  Receive Date: 20130611
  Receipt Date: 20130611
  Transmission Date: 20140414
  Serious: Yes (Congenital Anomaly)
  Sender: FDA-Public Use
  Company Number: GXKR2013DE002058

PATIENT
  Sex: Female
  Weight: 3.19 kg

DRUGS (3)
  1. FLUOXETINE [Suspect]
     Dosage: MATERNAL DOSE (GW 0.-7. AND GW 22.-34.): 40MG/DAY
     Route: 064
  2. AMOXICILLIN [Concomitant]
     Dosage: MATERNAL DOSE (GW 32.-33.): UNKNOWN
     Route: 064
  3. FOLIC ACID [Concomitant]
     Dosage: MATERNAL DOSE (GW 9-40): UNKNOWN
     Route: 064

REACTIONS (1)
  - Pyloric stenosis [Unknown]
